FAERS Safety Report 9512454 (Version 2)
Quarter: 2014Q1

REPORT INFORMATION
  Report Type: Spontaneous
  Country: US (occurrence: None)
  Receive Date: 20130305
  Receipt Date: 20140306
  Transmission Date: 20141002
  Serious: Yes (Hospitalization, Other)
  Sender: FDA-Public Use
  Company Number: 163-21880-12103162

PATIENT
  Age: 70 Year
  Sex: Female
  Weight: 67.1 kg

DRUGS (6)
  1. REVLIMID [Suspect]
     Indication: MYELODYSPLASTIC SYNDROME
     Dosage: 10 MG, 21 IN 28 D, PO
     Route: 048
     Dates: start: 20120714
  2. PROCRIT [Concomitant]
  3. FOLIC ACID [Concomitant]
  4. VITAMIN B12 ( CYANOCOBALAMIN) [Concomitant]
  5. HYLAND^S ALLERGY ( CONTAC 700) [Concomitant]
  6. IRON ( IRON) [Concomitant]

REACTIONS (7)
  - Full blood count decreased [None]
  - Anaemia [None]
  - Chest pain [None]
  - Constipation [None]
  - Arthralgia [None]
  - Influenza like illness [None]
  - Hypoaesthesia [None]
